FAERS Safety Report 7043597-8 (Version None)
Quarter: 2010Q4

REPORT INFORMATION
  Report Type: 
  Country: None (occurrence: None)
  Receive Date: 20101013
  Receipt Date: 20101006
  Transmission Date: 20110411
  Serious: Yes (Hospitalization)
  Sender: FDA-Public Use
  Company Number: A0886184A

PATIENT
  Age: 54 Year
  Sex: Female

DRUGS (2)
  1. AVANDIA [Suspect]
     Dosage: 2MG UNKNOWN
     Route: 048
     Dates: start: 20050501, end: 20070101
  2. AVANDAMET [Suspect]
     Route: 048
     Dates: start: 20041027, end: 20050101

REACTIONS (1)
  - TRANSIENT ISCHAEMIC ATTACK [None]
